FAERS Safety Report 8059077 (Version 7)
Quarter: 2013Q1

REPORT INFORMATION
  Report Type: Spontaneous
  Country: US (occurrence: US)
  Receive Date: 20110728
  Receipt Date: 20121101
  Transmission Date: 20140127
  Serious: Yes (Hospitalization, Disabling, Other)
  Sender: FDA-Public Use
  Company Number: US-009507513-1107USA03463

PATIENT
  Sex: 0

DRUGS (22)
  1. FOSAMAX [Suspect]
     Indication: OSTEOPOROSIS
     Dosage: 70 MG, QW
     Route: 048
     Dates: start: 20020313, end: 200506
  2. FOSAMAX [Suspect]
     Indication: OSTEOPENIA
     Dosage: 70 MG, QW
     Route: 048
     Dates: start: 20050921, end: 200602
  3. FOSAMAX [Suspect]
     Dosage: 70 MG, QW
     Route: 048
     Dates: start: 20060418, end: 200612
  4. FOSAMAX [Suspect]
     Dosage: 70 MG, QW
     Route: 048
     Dates: start: 20070904
  5. FOSAMAX D [Suspect]
     Indication: OSTEOPENIA
     Dosage: 70 MG, QW
     Route: 048
     Dates: start: 20050715, end: 200508
  6. FOSAMAX D [Suspect]
     Dosage: 70 MG, QW
     Route: 048
     Dates: start: 20060327
  7. FOSAMAX D [Suspect]
     Dosage: 70 MG, QW
     Route: 048
     Dates: start: 20070110, end: 200708
  8. CORTICOSTEROIDS (UNSPECIFIED) [Concomitant]
     Dates: start: 20020101, end: 20080201
  9. THERAPY UNSPECIFIED [Concomitant]
     Indication: RHEUMATOID ARTHRITIS
     Dates: start: 200203
  10. MK-8797 [Concomitant]
     Indication: SOMNOLENCE
  11. PROZAC [Concomitant]
     Indication: DEPRESSION
     Dosage: 20 MG, UNK
  12. RESLIN TABLETS 25 [Concomitant]
     Indication: INSOMNIA
     Dosage: 100-200
  13. MK-0152 [Concomitant]
     Indication: OEDEMA
     Dosage: 25 MG, PRN
  14. BENTYL [Concomitant]
     Indication: IRRITABLE BOWEL SYNDROME
     Dosage: 20 MG, PRN
  15. CYMBALTA [Concomitant]
     Indication: FIBROMYALGIA
     Dosage: 120 MG, UNK
  16. XANAX [Concomitant]
     Dosage: 1 MG, PRN
  17. SINGULAIR [Concomitant]
     Indication: ASTHMA
     Dosage: 10 MG, UNK
     Route: 048
  18. IMITREX (SUMATRIPTAN) [Concomitant]
     Indication: MIGRAINE
     Dosage: 100 MG, UNK
  19. FIORINAL (ASPIRIN (+) BUTALBITAL (+) CAFFEINE) [Concomitant]
     Indication: MIGRAINE
  20. OXYCODONE [Concomitant]
     Indication: PAIN
     Dosage: UNK UNK, PRN
  21. HYDROCODONE [Concomitant]
     Indication: PAIN
     Dosage: UNK UNK, PRN
  22. CENTRUM (MINERALS (UNSPECIFIED) (+) VITAMINS (UNSPECIFIED)) [Concomitant]
     Dosage: UNK
     Dates: start: 2000

REACTIONS (67)
  - Femur fracture [Not Recovered/Not Resolved]
  - Osteoporosis [Not Recovered/Not Resolved]
  - Multiple fractures [Not Recovered/Not Resolved]
  - Low turnover osteopathy [Not Recovered/Not Resolved]
  - Depression [Unknown]
  - Pain [Unknown]
  - Bacterial infection [Unknown]
  - Narcolepsy [Unknown]
  - Tension headache [Unknown]
  - Folate deficiency [Unknown]
  - Psoriasis [Unknown]
  - Insomnia [Unknown]
  - Femur fracture [Not Recovered/Not Resolved]
  - Seroma [Recovering/Resolving]
  - Anaemia [Unknown]
  - Myasthenia gravis [Unknown]
  - Toxic encephalopathy [Recovered/Resolved]
  - Respiratory failure [Unknown]
  - Pneumonia aspiration [Unknown]
  - Sleep apnoea syndrome [Unknown]
  - Thyroid disorder [Unknown]
  - Hypokalaemia [Unknown]
  - Azotaemia [Unknown]
  - Foot fracture [Unknown]
  - Carpal tunnel syndrome [Unknown]
  - Nervous system disorder [Unknown]
  - Synovial cyst [Unknown]
  - Femur fracture [Unknown]
  - Fall [Unknown]
  - Hypersensitivity [Unknown]
  - Bursitis [Unknown]
  - Fall [Unknown]
  - Restless legs syndrome [Unknown]
  - Foot fracture [Unknown]
  - Rotator cuff syndrome [Unknown]
  - Hypertension [Unknown]
  - Fracture nonunion [Unknown]
  - Nasopharyngitis [Unknown]
  - Pneumonia [Unknown]
  - Neuropathy peripheral [Unknown]
  - Palpitations [Unknown]
  - Confusional state [Unknown]
  - Amnesia [Unknown]
  - Epistaxis [Unknown]
  - Adverse drug reaction [Unknown]
  - Arthritis [Unknown]
  - Eye disorder [Unknown]
  - Monoclonal gammopathy [Unknown]
  - Hepatic cyst [Not Recovered/Not Resolved]
  - Oesophageal disorder [Unknown]
  - Nasal congestion [Recovering/Resolving]
  - Chronic sinusitis [Unknown]
  - Nasal septum deviation [Unknown]
  - Atelectasis [Unknown]
  - Dry mouth [Unknown]
  - Headache [Unknown]
  - Vomiting [Unknown]
  - Gastrooesophageal reflux disease [Unknown]
  - Nausea [Unknown]
  - Arthralgia [Unknown]
  - Tendon injury [Unknown]
  - Limb asymmetry [Not Recovered/Not Resolved]
  - Foot deformity [Unknown]
  - Arthralgia [Unknown]
  - Tendon sheath lesion excision [Unknown]
  - Iridotomy [Unknown]
  - Glaucoma [Unknown]
